FAERS Safety Report 7746626-9 (Version None)
Quarter: 2011Q3

REPORT INFORMATION
  Report Type: 
  Country: None (occurrence: None)
  Receive Date: 20110913
  Receipt Date: 20110907
  Transmission Date: 20111222
  Serious: Yes (Other)
  Sender: FDA-Public Use
  Company Number: US-B.I. PHARMACEUTICALS,INC./RIDGEFIELD-2011-BP-21621BP

PATIENT
  Sex: Male

DRUGS (3)
  1. PRADAXA [Suspect]
     Dates: start: 20110801
  2. PRADAXA [Suspect]
     Dates: start: 20110801, end: 20110801
  3. CORTISONE ACETATE [Suspect]

REACTIONS (2)
  - WEIGHT INCREASED [None]
  - CARDIAC FAILURE CONGESTIVE [None]
